FAERS Safety Report 16999600 (Version 1)
Quarter: 2019Q4

REPORT INFORMATION
  Report Type: Spontaneous
  Country: CN (occurrence: CN)
  Receive Date: 20191105
  Receipt Date: 20191105
  Transmission Date: 20200122
  Serious: Yes (Other)
  Sender: FDA-Public Use
  Company Number: CN-BAXTER-2019BAX021765

PATIENT
  Age: 63 Year
  Sex: Female

DRUGS (5)
  1. 20% MANNITOL INJECTION [Suspect]
     Active Substance: MANNITOL
     Indication: EPILEPSY
  2. 20% MANNITOL INJECTION [Suspect]
     Active Substance: MANNITOL
     Indication: DIURETIC THERAPY
  3. METFORMIN [Suspect]
     Active Substance: METFORMIN HYDROCHLORIDE
     Indication: DIABETES MELLITUS MANAGEMENT
     Route: 065
  4. GADOPENTETIC ACID DIMEGLUMINE SALT [Suspect]
     Active Substance: GADOPENTETATE DIMEGLUMINE
     Indication: MAGNETIC RESONANCE IMAGING
     Route: 041
     Dates: start: 20191010, end: 20191010
  5. 20% MANNITOL INJECTION [Suspect]
     Active Substance: MANNITOL
     Indication: DISEASE RECURRENCE
     Dosage: INTRAVENOUS INJECTION
     Route: 042
     Dates: start: 20191007, end: 20191011

REACTIONS (4)
  - Blood creatinine increased [Recovering/Resolving]
  - Tachypnoea [Recovering/Resolving]
  - Anuria [Recovering/Resolving]
  - Generalised oedema [Recovering/Resolving]

NARRATIVE: CASE EVENT DATE: 20191011
